FAERS Safety Report 13369430 (Version 1)
Quarter: 2017Q1

REPORT INFORMATION
  Report Type: Spontaneous
  Country: US (occurrence: US)
  Receive Date: 20170324
  Receipt Date: 20170324
  Transmission Date: 20170429
  Serious: Yes (Life-Threatening, Disabling, Other)
  Sender: FDA-Public Use
  Company Number: None

PATIENT
  Age: 28 Year
  Sex: Male
  Weight: 112.5 kg

DRUGS (1)
  1. VENLAFLAXIN [Suspect]
     Active Substance: VENLAFAXINE HYDROCHLORIDE
     Indication: MAJOR DEPRESSION
     Dosage: ?          QUANTITY:2 CAPSULE(S);?
     Route: 048

REACTIONS (32)
  - Cardiac disorder [None]
  - Pain [None]
  - Activities of daily living impaired [None]
  - Dyspnoea [None]
  - Decreased interest [None]
  - Hypoaesthesia [None]
  - Fatigue [None]
  - Feeling abnormal [None]
  - Ejaculation failure [None]
  - Erectile dysfunction [None]
  - Tremor [None]
  - Depression [None]
  - Asthenia [None]
  - Chills [None]
  - Poor quality sleep [None]
  - Chest discomfort [None]
  - Musculoskeletal stiffness [None]
  - Cold sweat [None]
  - Photophobia [None]
  - Muscle twitching [None]
  - Loss of employment [None]
  - Palpitations [None]
  - Chest pain [None]
  - Headache [None]
  - Heart rate increased [None]
  - Social problem [None]
  - Drug withdrawal syndrome [None]
  - Hyperacusis [None]
  - Libido decreased [None]
  - Nausea [None]
  - Incoherent [None]
  - Paralysis [None]
